FAERS Safety Report 8426143-3 (Version None)
Quarter: 2012Q2

REPORT INFORMATION
  Report Type: 
  Country: None (occurrence: None)
  Receive Date: 20120611
  Receipt Date: 20120531
  Transmission Date: 20120825
  Serious: Yes (Death, Hospitalization)
  Sender: FDA-Public Use
  Company Number: BR-SANOFI-AVENTIS-2012SA039198

PATIENT
  Age: 52 Year
  Sex: Female

DRUGS (3)
  1. RIFAMPICIN [Suspect]
     Indication: LEPROMATOUS LEPROSY
     Route: 048
  2. DAPSONE [Concomitant]
     Indication: LEPROMATOUS LEPROSY
  3. CLOFAZIMINE [Concomitant]
     Indication: LEPROMATOUS LEPROSY
     Dosage: 50 MG TAKEN DAILY AND 300 MG TAKEN MONTHLY IN COMBINATION WITH RIFAMPICIN

REACTIONS (33)
  - BLOOD FIBRINOGEN DECREASED [None]
  - ABDOMINAL PAIN UPPER [None]
  - DEHYDRATION [None]
  - BLOOD CREATININE INCREASED [None]
  - BACK PAIN [None]
  - JAUNDICE [None]
  - ANAEMIA [None]
  - DYSPNOEA [None]
  - HAEMATEMESIS [None]
  - HAEMATURIA [None]
  - HEADACHE [None]
  - AGITATION [None]
  - HYPERHIDROSIS [None]
  - GASTROINTESTINAL HAEMORRHAGE [None]
  - HYPERTENSION [None]
  - HEPATIC NECROSIS [None]
  - ECCHYMOSIS [None]
  - INTERNATIONAL NORMALISED RATIO INCREASED [None]
  - ACTIVATED PARTIAL THROMBOPLASTIN TIME PROLONGED [None]
  - BLOOD UREA INCREASED [None]
  - CHEST PAIN [None]
  - NERVOUS SYSTEM DISORDER [None]
  - RESPIRATORY FAILURE [None]
  - GENITAL HAEMORRHAGE [None]
  - CYANOSIS [None]
  - ALANINE AMINOTRANSFERASE INCREASED [None]
  - CARDIAC ARREST [None]
  - DISSEMINATED INTRAVASCULAR COAGULATION [None]
  - PALLOR [None]
  - TACHYCARDIA [None]
  - GINGIVAL BLEEDING [None]
  - ASPARTATE AMINOTRANSFERASE INCREASED [None]
  - PERIPHERAL COLDNESS [None]
